FAERS Safety Report 11056037 (Version 2)
Quarter: 2015Q2

REPORT INFORMATION
  Report Type: Spontaneous
  Country: US (occurrence: US)
  Receive Date: 20150422
  Receipt Date: 20150514
  Transmission Date: 20150821
  Serious: No
  Sender: FDA-Public Use
  Company Number: US-GLAXOSMITHKLINE-US2015053556

PATIENT
  Age: 71 Year
  Sex: Male

DRUGS (5)
  1. PROSCAR [Concomitant]
     Active Substance: FINASTERIDE
  2. AVODART [Suspect]
     Active Substance: DUTASTERIDE
     Indication: PROSTATOMEGALY
     Dosage: 0.5 MG, 1D
     Dates: start: 2010
  3. FLONAX [Concomitant]
  4. FLOMAX [Concomitant]
     Active Substance: TAMSULOSIN HYDROCHLORIDE
  5. POTASSIUM [Concomitant]
     Active Substance: POTASSIUM

REACTIONS (16)
  - Nervousness [Not Recovered/Not Resolved]
  - Cerumen impaction [Unknown]
  - Rash [Unknown]
  - Fatigue [Not Recovered/Not Resolved]
  - Anxiety [Not Recovered/Not Resolved]
  - Rash macular [Recovered/Resolved]
  - Pruritus [Recovered/Resolved]
  - Influenza like illness [Unknown]
  - Blister [Recovered/Resolved]
  - Sinus disorder [Unknown]
  - Sinusitis [Recovering/Resolving]
  - Pruritus [Unknown]
  - Bronchitis [Recovering/Resolving]
  - Multiple allergies [Recovering/Resolving]
  - Blister [Unknown]
  - Bronchitis chronic [Unknown]

NARRATIVE: CASE EVENT DATE: 201503
